FAERS Safety Report 8539787-5 (Version None)
Quarter: 2012Q3

REPORT INFORMATION
  Report Type: 
  Country: None (occurrence: None)
  Receive Date: 20120726
  Receipt Date: 20120719
  Transmission Date: 20120928
  Serious: Yes (Other)
  Sender: FDA-Public Use
  Company Number: RU-009507513-1207RUS007085

PATIENT

DRUGS (2)
  1. NUVARING [Suspect]
     Indication: STEVENS-JOHNSON SYNDROME
     Route: 067
  2. FEMOSTON [Suspect]

REACTIONS (2)
  - THERAPEUTIC RESPONSE UNEXPECTED [None]
  - STEVENS-JOHNSON SYNDROME [None]
